FAERS Safety Report 6733100-1 (Version None)
Quarter: 2010Q2

REPORT INFORMATION
  Report Type: 
  Country: None (occurrence: None)
  Receive Date: 20100518
  Receipt Date: 20100507
  Transmission Date: 20101027
  Serious: Yes (Other)
  Sender: FDA-Public Use
  Company Number: 1022556-2010-00030

PATIENT
  Sex: Male

DRUGS (2)
  1. ICY HOT MEDICATED ROLL, 7.5% MENTHOL [Suspect]
     Indication: ANALGESIC THERAPY
     Dosage: 1X, TOPICALLY
     Route: 061
     Dates: start: 20100422
  2. METHADONE [Concomitant]

REACTIONS (2)
  - APPLICATION SITE EXFOLIATION [None]
  - PRODUCT ADHESION ISSUE [None]
